FAERS Safety Report 12423432 (Version 1)
Quarter: 2016Q2

REPORT INFORMATION
  Report Type: Spontaneous
  Country: US (occurrence: None)
  Receive Date: 20160531
  Receipt Date: 20160531
  Transmission Date: 20160815
  Serious: No
  Sender: FDA-Public Use
  Company Number: None

PATIENT
  Age: 48 Year
  Sex: Female
  Weight: 74.84 kg

DRUGS (12)
  1. MAGNESIUM [Concomitant]
     Active Substance: MAGNESIUM
  2. VITAMIN D [Concomitant]
     Active Substance: CHOLECALCIFEROL
  3. NITROFURANTOIN 100MG CAP, 100 MG [Suspect]
     Active Substance: NITROFURANTOIN
     Indication: CYSTITIS
     Route: 048
     Dates: start: 20160425, end: 20160502
  4. VITAMIN C [Concomitant]
     Active Substance: ASCORBIC ACID
  5. BIRTH CONTROL [Concomitant]
     Active Substance: UNSPECIFIED INGREDIENT
  6. COCONUT OIL CAPS [Concomitant]
  7. LOSARTAN. [Concomitant]
     Active Substance: LOSARTAN
  8. FISH OIL [Concomitant]
     Active Substance: FISH OIL
  9. PROBIOTICS [Concomitant]
     Active Substance: PROBIOTICS NOS
  10. PEPCID [Concomitant]
     Active Substance: FAMOTIDINE
  11. VITAMIN E [Concomitant]
     Active Substance: .ALPHA.-TOCOPHEROL
  12. GARLIC. [Concomitant]
     Active Substance: GARLIC

REACTIONS (3)
  - Burning sensation [None]
  - Dysuria [None]
  - Neuropathy peripheral [None]

NARRATIVE: CASE EVENT DATE: 20160515
